FAERS Safety Report 23629716 (Version 2)
Quarter: 2024Q2

REPORT INFORMATION
  Report Type: Report from Study
  Country: US (occurrence: US)
  Receive Date: 20240314
  Receipt Date: 20240401
  Transmission Date: 20240716
  Serious: Yes (Other)
  Sender: FDA-Public Use
  Company Number: US-Merck Healthcare KGaA-2023480971

PATIENT
  Age: 45 Year
  Sex: Female

DRUGS (1)
  1. REBIF [Suspect]
     Active Substance: INTERFERON BETA-1A
     Indication: Multiple sclerosis
     Dosage: REBIF THERAPY START DATE: PRIOR 2020
     Route: 058

REACTIONS (3)
  - Loss of consciousness [Not Recovered/Not Resolved]
  - Multiple sclerosis relapse [Unknown]
  - Product administration interrupted [Unknown]
